FAERS Safety Report 23227513 (Version 2)
Quarter: 2023Q4

REPORT INFORMATION
  Report Type: Report from Study
  Country: US (occurrence: US)
  Receive Date: 20231124
  Receipt Date: 20231214
  Transmission Date: 20240110
  Serious: Yes (Life-Threatening, Hospitalization)
  Sender: FDA-Public Use
  Company Number: US-Clinigen Group PLC/ Clinigen Healthcare Ltd-US-CLGN-20-00146

PATIENT

DRUGS (68)
  1. PROLEUKIN [Suspect]
     Active Substance: ALDESLEUKIN
     Indication: Cervix carcinoma recurrent
     Dosage: EVERY 8 TO 12 HOURS
     Route: 042
     Dates: start: 20200324, end: 20200326
  2. PROLEUKIN [Suspect]
     Active Substance: ALDESLEUKIN
     Dosage: 50 MILLILITER
     Route: 042
     Dates: start: 20200326, end: 20200326
  3. LIFILEUCEL [Suspect]
     Active Substance: LIFILEUCEL
     Indication: Cervix carcinoma recurrent
     Dosage: 100 MILLILITER, Q8H
     Route: 042
     Dates: start: 20200324, end: 20200324
  4. CYCLOPHOSPHAMIDE [Suspect]
     Active Substance: CYCLOPHOSPHAMIDE
     Indication: Cervix carcinoma recurrent
     Dosage: 1491 MILLIGRAM, QD
     Route: 042
     Dates: start: 20200318, end: 20200318
  5. FLUDARABINE [Suspect]
     Active Substance: FLUDARABINE PHOSPHATE
     Indication: Cervix carcinoma recurrent
     Dosage: 30 MILLIGRAM, QD
     Route: 042
     Dates: start: 20200319, end: 20200323
  6. IBUPROFEN [Suspect]
     Active Substance: IBUPROFEN
     Indication: Product used for unknown indication
     Dosage: 600 MILLIGRAM, Q8H
     Dates: start: 20200324
  7. CALCIUM GLUCONATE [Concomitant]
     Active Substance: CALCIUM GLUCONATE
     Indication: Product used for unknown indication
     Dosage: 60 ML/MIN
     Dates: start: 20200330
  8. DEXTROSE [Concomitant]
     Active Substance: DEXTROSE\DEXTROSE MONOHYDRATE
     Indication: Product used for unknown indication
     Dosage: 150 ML/HR
     Dates: start: 20200330
  9. DEXTROSE [Concomitant]
     Active Substance: DEXTROSE\DEXTROSE MONOHYDRATE
     Dosage: 12.5 GRAM, PRN
     Dates: start: 20200330
  10. COLACE [Concomitant]
     Active Substance: DOCUSATE SODIUM
     Indication: Product used for unknown indication
     Dosage: UNK UNK
  11. PEPCID [Concomitant]
     Active Substance: FAMOTIDINE
     Indication: Product used for unknown indication
     Dosage: UNK UNK
  12. ZARXIO [Concomitant]
     Active Substance: FILGRASTIM-SNDZ
     Indication: Product used for unknown indication
     Dosage: UNK UNK
  13. DIFLUCAN [Concomitant]
     Active Substance: FLUCONAZOLE
     Indication: Product used for unknown indication
     Dosage: UNK UNK
  14. GLUCAGON [Concomitant]
     Active Substance: GLUCAGON\GLUCAGON HYDROCHLORIDE\WATER
     Indication: Product used for unknown indication
     Dosage: UNK UNK
  15. DEXTROSE [Concomitant]
     Active Substance: DEXTROSE\DEXTROSE MONOHYDRATE
     Indication: Product used for unknown indication
     Dosage: UNK UNK
  16. DUO-NEB [Concomitant]
     Indication: Product used for unknown indication
     Dosage: UNK UNK
  17. LEVAQUIN [Concomitant]
     Active Substance: LEVOFLOXACIN
     Indication: Product used for unknown indication
     Dosage: UNK UNK
  18. EMLA [Concomitant]
     Active Substance: LIDOCAINE\PRILOCAINE
     Indication: Product used for unknown indication
     Dosage: UNK UNK
  19. IMODIUM [Concomitant]
     Active Substance: LOPERAMIDE HYDROCHLORIDE
     Indication: Product used for unknown indication
     Dosage: UNK UNK
  20. ATIVAN [Concomitant]
     Active Substance: LORAZEPAM
     Indication: Anxiety
     Dosage: 1 MILLIGRAM, BID
     Route: 048
     Dates: start: 2019
  21. ATIVAN [Concomitant]
     Active Substance: LORAZEPAM
     Indication: Nausea
  22. MAGNESIUM SULFATE [Concomitant]
     Active Substance: MAGNESIUM SULFATE\MAGNESIUM SULFATE HEPTAHYDRATE
     Indication: Product used for unknown indication
     Dosage: UNK UNK
  23. MOISTURIZING [Concomitant]
     Indication: Product used for unknown indication
     Dosage: UNK UNK
  24. MS CONTIN [Concomitant]
     Active Substance: MORPHINE SULFATE
     Indication: Product used for unknown indication
     Dosage: UNK UNK
  25. VITAMINS [Concomitant]
     Active Substance: VITAMINS
     Indication: Product used for unknown indication
     Dosage: UNK UNK
  26. NARCAN [Concomitant]
     Active Substance: NALOXONE HYDROCHLORIDE
     Indication: Product used for unknown indication
     Dosage: UNK UNK
  27. ZYPREXA [Concomitant]
     Active Substance: OLANZAPINE
     Indication: Product used for unknown indication
     Dosage: UNK UNK
  28. ROXICODONE [Concomitant]
     Active Substance: OXYCODONE HYDROCHLORIDE
     Indication: Pain
     Dosage: 5 MILLIGRAM, PRN
     Route: 048
     Dates: start: 2019
  29. PHENYLEPHRINE [Concomitant]
     Active Substance: PHENYLEPHRINE HYDROCHLORIDE
     Indication: Product used for unknown indication
     Dosage: UNK UNK
  30. MIRALAX [Concomitant]
     Active Substance: POLYETHYLENE GLYCOL 3350
     Indication: Product used for unknown indication
     Dosage: UNK UNK
  31. PHENERGAN [Concomitant]
     Active Substance: PROMETHAZINE HYDROCHLORIDE
     Indication: Product used for unknown indication
     Dosage: UNK UNK
  32. SENOKOT [Concomitant]
     Active Substance: SENNOSIDES
     Indication: Product used for unknown indication
     Dosage: UNK UNK
  33. OXYCONTIN [Concomitant]
     Active Substance: OXYCODONE HYDROCHLORIDE
     Indication: Product used for unknown indication
     Dosage: UNK UNK
  34. SENNA [Concomitant]
     Active Substance: SENNA LEAF\SENNOSIDES\SENNOSIDES A AND B
     Indication: Constipation
     Dosage: UNK UNK
     Route: 048
     Dates: start: 20200317, end: 20200317
  35. SENNA [Concomitant]
     Active Substance: SENNA LEAF\SENNOSIDES\SENNOSIDES A AND B
     Dosage: UNK UNK
     Route: 048
     Dates: start: 20200320, end: 20200320
  36. COMPAZINE [Concomitant]
     Active Substance: PROCHLORPERAZINE MALEATE
     Indication: Nausea
     Dosage: 10 MILLIGRAM, PRN
     Route: 048
     Dates: start: 20200316, end: 20200325
  37. COMPAZINE [Concomitant]
     Active Substance: PROCHLORPERAZINE MALEATE
     Dosage: 10 MILLIGRAM, PRN
     Route: 042
     Dates: start: 20200318, end: 20200403
  38. POLYETHYLENE GLYCOL [Concomitant]
     Active Substance: POLYETHYLENE GLYCOL
     Indication: Constipation
     Dosage: 17 GRAM, PRN
     Route: 048
     Dates: start: 20200317, end: 20200322
  39. OXYCODONE [Concomitant]
     Active Substance: OXYCODONE
     Indication: Cancer pain
     Dosage: 10 MILLIGRAM, PRN
     Route: 048
     Dates: start: 20200317, end: 20200324
  40. OXYCODONE [Concomitant]
     Active Substance: OXYCODONE
     Dosage: 30 MILLIGRAM, BID
     Route: 048
     Dates: start: 20200306
  41. MORPHINE [Concomitant]
     Active Substance: MORPHINE
     Indication: Cancer pain
     Dosage: 15 MILLIGRAM, PRN
     Route: 048
     Dates: start: 20200317, end: 20200320
  42. MORPHINE [Concomitant]
     Active Substance: MORPHINE
     Dosage: 30 MILLIGRAM, PRN
     Route: 048
     Dates: start: 20200318, end: 20200327
  43. MORPHINE [Concomitant]
     Active Substance: MORPHINE
     Dosage: 2 MILLIGRAM, QD
     Route: 042
     Dates: start: 20200319, end: 20200319
  44. SODIUM CHLORIDE [Concomitant]
     Active Substance: SODIUM CHLORIDE
     Indication: Prophylaxis against dehydration
     Dosage: 1000 MILLILITER, QD
     Route: 042
     Dates: start: 20200317, end: 20200318
  45. POTASSIUM CHLORIDE [Concomitant]
     Active Substance: POTASSIUM CHLORIDE
     Indication: Product used for unknown indication
     Dosage: 40 MILLIEQUIVALENT, PRN
     Route: 048
     Dates: start: 20200317, end: 20200319
  46. POTASSIUM CHLORIDE [Concomitant]
     Active Substance: POTASSIUM CHLORIDE
     Dosage: 20 MILLIEQUIVALENT, PRN
     Dates: start: 20200329
  47. PALONOSETRON [Concomitant]
     Active Substance: PALONOSETRON
     Indication: Premedication
     Dosage: .25 MILLIGRAM, QD
     Route: 042
     Dates: start: 20200317, end: 20200317
  48. ONDANSETRON [Concomitant]
     Active Substance: ONDANSETRON
     Indication: Nausea
     Dosage: 8 MILLIGRAM, PRN
     Route: 042
     Dates: start: 20200318, end: 20200320
  49. ONDANSETRON [Concomitant]
     Active Substance: ONDANSETRON
     Dosage: 4 MILLIGRAM, PRN
     Dates: start: 20200330
  50. FOSAPREPITANT [Concomitant]
     Active Substance: FOSAPREPITANT
     Indication: Premedication
     Dosage: 150 MILLIGRAM, QD
     Route: 042
     Dates: start: 20200317, end: 20200317
  51. DEXTROSE\SODIUM CHLORIDE [Concomitant]
     Active Substance: DEXTROSE\SODIUM CHLORIDE
     Indication: Routine health maintenance
     Dosage: UNK UNK, QD
     Route: 042
     Dates: start: 20200317, end: 20200324
  52. OLANZAPINE [Concomitant]
     Active Substance: OLANZAPINE
     Indication: Nausea
     Dosage: 2.5 MILLIGRAM, QD
     Route: 048
     Dates: start: 20200321, end: 20200322
  53. EFFEXOR XR [Concomitant]
     Active Substance: VENLAFAXINE HYDROCHLORIDE
     Indication: Depression
     Dosage: UNK UNK
     Route: 048
     Dates: start: 2018
  54. EFFEXOR [Concomitant]
     Active Substance: VENLAFAXINE HYDROCHLORIDE
     Indication: Depression
     Dosage: 37.5 MILLIGRAM, Q8H
     Dates: start: 2018
  55. TYLENOL [Concomitant]
     Active Substance: ACETAMINOPHEN
     Indication: Pain
     Dosage: 650 MILLIGRAM, PRN
     Route: 048
     Dates: start: 2015
  56. MELATONIN [Concomitant]
     Active Substance: MELATONIN
     Indication: Insomnia
     Dosage: 3 MILLIGRAM
     Route: 048
     Dates: start: 201907
  57. CANNABIS SATIVA SUBSP. INDICA TOP [Concomitant]
     Active Substance: CANNABIS SATIVA SUBSP. INDICA TOP
     Indication: Insomnia
     Dosage: UNK UNK, PRN
     Route: 048
     Dates: start: 201907
  58. CORDARONE [Concomitant]
     Active Substance: AMIODARONE HYDROCHLORIDE
     Indication: Product used for unknown indication
     Dosage: 1 MG/MIN
     Dates: start: 20200330
  59. ANTICOAGULANT SODIUM CITRATE [Concomitant]
     Active Substance: SODIUM CITRATE
     Indication: Product used for unknown indication
     Dosage: 140 ML/HR
  60. EPINEPHRINE [Concomitant]
     Active Substance: EPINEPHRINE
     Indication: Product used for unknown indication
     Dosage: UNK UNK
  61. FENTANYL [Concomitant]
     Active Substance: FENTANYL\FENTANYL CITRATE
     Indication: Product used for unknown indication
     Dosage: 50 MCG/HR
     Dates: start: 20200330
  62. FENTANYL [Concomitant]
     Active Substance: FENTANYL\FENTANYL CITRATE
     Dosage: 25 MICROGRAM, PRN
     Dates: start: 20200330
  63. NOREPINEPHRINE [Concomitant]
     Active Substance: NOREPINEPHRINE
     Indication: Product used for unknown indication
     Dosage: 16 MCG/MIN
  64. PITRESSIN [Concomitant]
     Active Substance: VASOPRESSIN
     Indication: Product used for unknown indication
     Dosage: 0.04 UNITS/MIN
     Dates: start: 20200330
  65. HEPARIN [Concomitant]
     Active Substance: HEPARIN SODIUM
     Indication: Product used for unknown indication
     Dosage: 100 UNITS
     Dates: start: 20200327
  66. ALBUTEROL\IPRATROPIUM [Concomitant]
     Active Substance: ALBUTEROL\IPRATROPIUM
     Indication: Product used for unknown indication
     Dosage: 3 MILLILITER, PRN
     Dates: start: 20200328
  67. PROCHLORPERAZINE [Concomitant]
     Active Substance: PROCHLORPERAZINE
     Indication: Product used for unknown indication
     Dosage: 10 MILLIGRAM, PRN
     Dates: start: 20200325
  68. PROPOFOL [Concomitant]
     Active Substance: PROPOFOL
     Indication: Product used for unknown indication
     Dosage: 10 MCG/KG/MIN
     Dates: start: 20200330

REACTIONS (9)
  - Multiple organ dysfunction syndrome [Not Recovered/Not Resolved]
  - Acute respiratory failure [Not Recovered/Not Resolved]
  - Atrial fibrillation [Recovered/Resolved with Sequelae]
  - Acute kidney injury [Recovered/Resolved]
  - Lymphocyte count decreased [Not Recovered/Not Resolved]
  - Neutrophil count decreased [Recovered/Resolved]
  - Upper gastrointestinal haemorrhage [Not Recovered/Not Resolved]
  - Anaemia [Not Recovered/Not Resolved]
  - Thrombocytopenia [Not Recovered/Not Resolved]

NARRATIVE: CASE EVENT DATE: 20200320
